FAERS Safety Report 9912115 (Version 1)
Quarter: 2014Q1

REPORT INFORMATION
  Report Type: Other
  Country: CA (occurrence: CA)
  Receive Date: 20140219
  Receipt Date: 20140219
  Transmission Date: 20141002
  Serious: Yes (Death, Other)
  Sender: FDA-Public Use
  Company Number: CA-BRISTOL-MYERS SQUIBB COMPANY-20232898

PATIENT
  Age: 32 Month
  Sex: Male

DRUGS (2)
  1. CARBOPLATIN [Suspect]
     Indication: CENTRAL NERVOUS SYSTEM NEOPLASM
  2. THIOTEPA [Suspect]
     Indication: CENTRAL NERVOUS SYSTEM NEOPLASM

REACTIONS (2)
  - Pulmonary arterial hypertension [Fatal]
  - Pulmonary vasculitis [Unknown]
